FAERS Safety Report 18509987 (Version 1)
Quarter: 2020Q4

REPORT INFORMATION
  Report Type: Spontaneous
  Country: AU (occurrence: AU)
  Receive Date: 20201117
  Receipt Date: 20201117
  Transmission Date: 20210114
  Serious: Yes (Life-Threatening, Other)
  Sender: FDA-Public Use
  Company Number: AU-PFIZER INC-2020448610

PATIENT
  Sex: Male

DRUGS (13)
  1. CEFOTAXIME [Suspect]
     Active Substance: CEFOTAXIME SODIUM
     Indication: HAEMOPHILUS INFECTION
     Dosage: UNK (WAS CONTINUED FOR 16 DAYS)
  2. VANCOMYCIN HCL [Suspect]
     Active Substance: VANCOMYCIN HYDROCHLORIDE
     Dosage: UNK (ON DAY 31,WERE REINTRODUCED
  3. VANCOMYCIN HCL [Suspect]
     Active Substance: VANCOMYCIN HYDROCHLORIDE
     Indication: NECROTISING COLITIS
     Dosage: UNK (DAY 10-23)
  4. VANCOMYCIN HCL [Suspect]
     Active Substance: VANCOMYCIN HYDROCHLORIDE
     Dosage: UNK
  5. FUROSEMIDE. [Suspect]
     Active Substance: FUROSEMIDE
     Dosage: UNK
  6. FLUCONAZOLE. [Concomitant]
     Active Substance: FLUCONAZOLE
     Dosage: UNK (DAY 2 STARTED)
  7. METRONIDAZOLE. [Concomitant]
     Active Substance: METRONIDAZOLE
     Indication: NECROTISING COLITIS
     Dosage: UNK (DAY 10-23)
  8. PENICILLIN [PENICILLIN NOS] [Concomitant]
     Active Substance: PENICILLIN
     Dosage: UNK
  9. VANCOMYCIN HCL [Suspect]
     Active Substance: VANCOMYCIN HYDROCHLORIDE
     Dosage: STARTED BUT CEASED DAY 45
  10. FLUCONAZOLE. [Concomitant]
     Active Substance: FLUCONAZOLE
     Dosage: UNK (CEASED, ON DAY 6 IN THE ABSENCE POSITIVE BLOOD CULTURE OF FUNGI OR GRAMPOSITIVE BACTERIA)
  11. CEFOTAXIME [Suspect]
     Active Substance: CEFOTAXIME SODIUM
     Dosage: UNK (WERE REINTRODUCED)
  12. VANCOMYCIN HCL [Suspect]
     Active Substance: VANCOMYCIN HYDROCHLORIDE
     Indication: HAEMOPHILUS INFECTION
     Dosage: UNK (ADDED DAY 1, CEASED DAY 5)
  13. GENTAMICIN SULFATE. [Concomitant]
     Active Substance: GENTAMICIN SULFATE
     Indication: HAEMOPHILUS INFECTION
     Dosage: UNK

REACTIONS (6)
  - Leukocytosis [Recovered/Resolved]
  - Neutropenia [Recovered/Resolved]
  - Thrombocytopenia neonatal [Unknown]
  - C-reactive protein increased [Unknown]
  - Leukopenia [Recovered/Resolved]
  - Sepsis [Unknown]
